FAERS Safety Report 10102602 (Version 2)
Quarter: 2014Q2

REPORT INFORMATION
  Report Type: Spontaneous
  Country: US (occurrence: US)
  Receive Date: 20140424
  Receipt Date: 20140520
  Transmission Date: 20141212
  Serious: Yes (Hospitalization, Other)
  Sender: FDA-Public Use
  Company Number: US-BAXTER-2014BAX019770

PATIENT
  Sex: Female

DRUGS (5)
  1. DIANEAL LOW CALCIUM (ULTRABAG) [Suspect]
     Indication: RENAL FAILURE CHRONIC
     Route: 033
     Dates: start: 2008
  2. DIANEAL LOW CALCIUM (ULTRABAG) [Suspect]
     Indication: RENAL FAILURE CHRONIC
     Route: 033
     Dates: start: 2008
  3. TIGECYCLINE [Suspect]
     Indication: OSTEOMYELITIS
     Route: 042
     Dates: start: 201403, end: 201403
  4. ZYVOX [Suspect]
     Indication: OSTEOMYELITIS
     Route: 042
     Dates: start: 201403, end: 201404
  5. RIFAMPIN [Suspect]
     Indication: OSTEOMYELITIS
     Route: 042
     Dates: start: 201404, end: 201404

REACTIONS (6)
  - Cough [Recovering/Resolving]
  - Diabetic gangrene [Recovering/Resolving]
  - Osteomyelitis [Recovering/Resolving]
  - Cyclic vomiting syndrome [Recovering/Resolving]
  - Drug hypersensitivity [Recovering/Resolving]
  - Aphasia [Unknown]
